FAERS Safety Report 8969517 (Version 1)
Quarter: 2012Q4

REPORT INFORMATION
  Report Type: 
  Country: US (occurrence: US)
  Receive Date: 20121218
  Receipt Date: 20121218
  Transmission Date: 20130627
  Serious: No
  Sender: FDA-Public Use
  Company Number: US-BRISTOL-MYERS SQUIBB COMPANY-16265753

PATIENT
  Age: 72 Year
  Sex: Female

DRUGS (4)
  1. ABILIFY [Suspect]
     Dosage: 1DF:5mg and 2mg
  2. LAMICTAL [Concomitant]
  3. VALIUM [Concomitant]
  4. PROZAC [Concomitant]

REACTIONS (1)
  - Muscle twitching [Unknown]
